FAERS Safety Report 11650427 (Version 5)
Quarter: 2017Q4

REPORT INFORMATION
  Report Type: Spontaneous
  Country: US (occurrence: US)
  Receive Date: 20151021
  Receipt Date: 20171013
  Transmission Date: 20180320
  Serious: Yes (Disabling, Other)
  Sender: FDA-Public Use
  Company Number: US-BAYER-2015-444034

PATIENT
  Age: 23 Year
  Sex: Female

DRUGS (8)
  1. CIPROFLOXACIN. [Suspect]
     Active Substance: CIPROFLOXACIN
     Indication: DIARRHOEA INFECTIOUS
     Dosage: 500 MG, BID
  2. HYDROCODONE [Concomitant]
     Active Substance: HYDROCODONE
  3. LANSOPRAZOLE. [Concomitant]
     Active Substance: LANSOPRAZOLE
  4. ALENDRONATE SODIUM. [Concomitant]
     Active Substance: ALENDRONATE SODIUM
  5. PANTOPRAZOLE [Concomitant]
     Active Substance: PANTOPRAZOLE
  6. MOXIFLOXACIN ORAL [Suspect]
     Active Substance: MOXIFLOXACIN
     Indication: OROPHARYNGEAL PAIN
     Dosage: 400 MG, QD
  7. MOXIFLOXACIN ORAL [Suspect]
     Active Substance: MOXIFLOXACIN
     Indication: PYREXIA
  8. CETIRIZINE [Concomitant]
     Active Substance: CETIRIZINE HYDROCHLORIDE

REACTIONS (42)
  - Nausea [Not Recovered/Not Resolved]
  - Dizziness [None]
  - Impaired gastric emptying [None]
  - Muscle contractions involuntary [None]
  - Mood swings [None]
  - Tendonitis [None]
  - Hypotension [None]
  - Dry eye [None]
  - Insomnia [None]
  - Autonomic nervous system imbalance [Not Recovered/Not Resolved]
  - Irritable bowel syndrome [Not Recovered/Not Resolved]
  - Upper respiratory tract infection [None]
  - Orthostatic intolerance [None]
  - Dry mouth [None]
  - Migraine [Not Recovered/Not Resolved]
  - Gastrooesophageal reflux disease [None]
  - Weight decreased [None]
  - Arthralgia [None]
  - Disturbance in attention [Not Recovered/Not Resolved]
  - Ulcerative keratitis [None]
  - Decreased appetite [None]
  - Micturition urgency [None]
  - Multiple chemical sensitivity [None]
  - Gastrointestinal pain [None]
  - Sensory disturbance [None]
  - Seizure [None]
  - Sinus disorder [None]
  - Muscular weakness [None]
  - Myalgia [None]
  - Tachycardia [Not Recovered/Not Resolved]
  - Cognitive disorder [Not Recovered/Not Resolved]
  - Food intolerance [None]
  - Cognitive disorder [None]
  - Mydriasis [None]
  - Dyspnoea [None]
  - Migraine [None]
  - Toxicity to various agents [Not Recovered/Not Resolved]
  - Sinusitis [None]
  - Fatigue [Not Recovered/Not Resolved]
  - Fatigue [None]
  - Alopecia [None]
  - Neuropathy peripheral [Not Recovered/Not Resolved]
